FAERS Safety Report 19630056 (Version 1)
Quarter: 2021Q3

REPORT INFORMATION
  Report Type: Spontaneous
  Country: US (occurrence: US)
  Receive Date: 20210728
  Receipt Date: 20210728
  Transmission Date: 20211014
  Serious: No
  Sender: FDA-Public Use
  Company Number: US-SA-2021SA239154

PATIENT
  Age: 61 Year
  Sex: Female

DRUGS (3)
  1. DUPIXENT [Suspect]
     Active Substance: DUPILUMAB
     Dosage: 300 MG, QOW
     Route: 058
     Dates: start: 20210112
  2. LEVAQUIN [Concomitant]
     Active Substance: LEVOFLOXACIN
  3. PREDNISONE. [Concomitant]
     Active Substance: PREDNISONE

REACTIONS (3)
  - Erythema [Unknown]
  - Vocal cord cyst [Unknown]
  - Sinus disorder [Unknown]

NARRATIVE: CASE EVENT DATE: 2021
